FAERS Safety Report 22217721 (Version 1)
Quarter: 2023Q2

REPORT INFORMATION
  Report Type: Spontaneous
  Country: MY (occurrence: MY)
  Receive Date: 20230417
  Receipt Date: 20230417
  Transmission Date: 20230721
  Serious: Yes (Death)
  Sender: FDA-Public Use
  Company Number: MY-STRIDES ARCOLAB LIMITED-2023SP005313

PATIENT
  Age: 4 Year
  Sex: Female

DRUGS (3)
  1. ETOPOSIDE [Suspect]
     Active Substance: ETOPOSIDE
     Indication: Neurofibrosarcoma
     Dosage: UNK, CYCLICAL (RECEIVED TOTAL 8 CYCLES OF ICE CHEMOTHERAPY)
     Route: 065
  2. IFOSFAMIDE [Suspect]
     Active Substance: IFOSFAMIDE
     Indication: Neurofibrosarcoma
     Dosage: UNK, CYCLICAL (RECEIVED TOTAL 8 CYCLES OF ICE CHEMOTHERAPY)
     Route: 065
  3. CARBOPLATIN [Suspect]
     Active Substance: CARBOPLATIN
     Indication: Neurofibrosarcoma
     Dosage: UNK, CYCLICAL (RECEIVED TOTAL 8 CYCLES OF ICE CHEMOTHERAPY)
     Route: 065

REACTIONS (4)
  - Septic shock [Fatal]
  - Multiple organ dysfunction syndrome [Fatal]
  - Pneumothorax [Fatal]
  - Drug ineffective for unapproved indication [Fatal]
